FAERS Safety Report 8529664-8 (Version None)
Quarter: 2012Q3

REPORT INFORMATION
  Report Type: 
  Country: None (occurrence: None)
  Receive Date: 20120723
  Receipt Date: 20120715
  Transmission Date: 20120928
  Serious: Yes (Other)
  Sender: FDA-Public Use
  Company Number: US-JNJFOC-20120709425

PATIENT
  Age: 58 Year
  Sex: Female

DRUGS (4)
  1. DOXORUBICIN HYDROCHLORIDE [Suspect]
     Indication: BREAST CANCER METASTATIC
     Dosage: USED FOR 1 - 6 MONTHS
     Route: 042
  2. BEVACIZUMAB [Interacting]
     Indication: BREAST CANCER METASTATIC
     Dosage: USED FOR 1 - 6 MONTHS
     Route: 065
  3. UNKNOWN MEDICATION [Concomitant]
     Indication: BREAST CANCER METASTATIC
     Route: 065
  4. CARBOPLATIN [Interacting]
     Indication: BREAST CANCER METASTATIC
     Dosage: USED FOR 1 - 6 MONTHS
     Route: 065

REACTIONS (2)
  - DRUG INTERACTION [None]
  - PANCREATITIS [None]
